FAERS Safety Report 8408093-1 (Version None)
Quarter: 2012Q2

REPORT INFORMATION
  Report Type: 
  Country: None (occurrence: None)
  Receive Date: 20120604
  Receipt Date: 20120521
  Transmission Date: 20120825
  Serious: No
  Sender: FDA-Public Use
  Company Number: US-ASTRAZENECA-2012SE32844

PATIENT
  Age: 62 Year
  Sex: Female

DRUGS (2)
  1. ATACAND HCT [Suspect]
     Route: 048
  2. TOPROL-XL [Suspect]
     Route: 048

REACTIONS (1)
  - LOWER LIMB FRACTURE [None]
